FAERS Safety Report 4653236-9 (Version None)
Quarter: 2005Q2

REPORT INFORMATION
  Report Type: 
  Country: None (occurrence: None)
  Receive Date: 20050503
  Receipt Date: 20050503
  Transmission Date: 20051028
  Serious: Yes (Hospitalization)
  Sender: FDA-Public Use
  Company Number: None

PATIENT
  Age: 47 Year
  Sex: Male
  Weight: 99.9 kg

DRUGS (10)
  1. INTEGRILIN [Suspect]
     Indication: ANTIPLATELET THERAPY
     Dosage: 2 (95ML BOLUSES/17ML/HR IV
     Route: 042
     Dates: start: 20050427, end: 20050428
  2. HEPARIN [Suspect]
     Indication: THROMBOSIS PROPHYLAXIS
     Dosage: 5,000 UNITS IV
     Route: 042
     Dates: start: 20050427
  3. FENTANYL [Concomitant]
  4. MIDAZOLAM [Concomitant]
  5. NITROGLYCERIN [Concomitant]
  6. CLOPIDOGREL BISULFATE [Concomitant]
  7. ASPIRIN [Concomitant]
  8. LIPITOR [Concomitant]
  9. COREG [Concomitant]
  10. ENALAPRIL MALEATE [Concomitant]

REACTIONS (4)
  - CONTRAST MEDIA REACTION [None]
  - FACE OEDEMA [None]
  - FLUSHING [None]
  - POST PROCEDURAL COMPLICATION [None]
